FAERS Safety Report 24928667 (Version 1)
Quarter: 2025Q1

REPORT INFORMATION
  Report Type: Spontaneous
  Country: FR (occurrence: FR)
  Receive Date: 20250205
  Receipt Date: 20250205
  Transmission Date: 20250408
  Serious: Yes (Other)
  Sender: FRESENIUS KABI
  Company Number: None

PATIENT
  Age: 53 Year
  Sex: Female
  Weight: 54 kg

DRUGS (5)
  1. TYENNE [Suspect]
     Active Substance: TOCILIZUMAB-AAZG
     Indication: Still^s disease
     Route: 042
     Dates: start: 20250117, end: 20250117
  2. DESLORATADINE [DESLORATADINE] [Concomitant]
     Indication: Product used for unknown indication
  3. LANSOPRAZOLE [Concomitant]
     Active Substance: LANSOPRAZOLE
     Indication: Product used for unknown indication
  4. CARMELLOSE [CARMELLOSE] [Concomitant]
     Indication: Product used for unknown indication
  5. COLCHICINE [COLCHICINE] [Concomitant]
     Indication: Product used for unknown indication

REACTIONS (2)
  - Type I hypersensitivity [Recovered/Resolved]
  - Product substitution issue [Recovered/Resolved]

NARRATIVE: CASE EVENT DATE: 20250117
